FAERS Safety Report 16458581 (Version 1)
Quarter: 2019Q2

REPORT INFORMATION
  Report Type: Spontaneous
  Country: US (occurrence: US)
  Receive Date: 20190620
  Receipt Date: 20190620
  Transmission Date: 20190711
  Serious: No
  Sender: FDA-Public Use
  Company Number: US-THERAPEUTICSMD-2019TMD00500

PATIENT
  Age: 79 Year
  Sex: Female
  Weight: 70.3 kg

DRUGS (17)
  1. BIOTIN [Concomitant]
     Active Substance: BIOTIN
     Dosage: UNK, 1X/DAY
  2. METFORMIN [Concomitant]
     Active Substance: METFORMIN HYDROCHLORIDE
     Dosage: 500 MG, 2X/DAY
  3. TYLENOL [Concomitant]
     Active Substance: ACETAMINOPHEN
     Dosage: 300 MG, AS NEEDED
  4. IMVEXXY [Suspect]
     Active Substance: ESTRADIOL
     Dosage: 10 ?G, 2X/WEEK AT NIGHT
     Route: 067
     Dates: start: 2019, end: 2019
  5. ATORVASTATIN [Concomitant]
     Active Substance: ATORVASTATIN
     Dosage: 80 MG, 1X/DAY
  6. VITAMIN B12 [Concomitant]
     Active Substance: CYANOCOBALAMIN
     Dosage: UNK, 1X/MONTH
  7. MULTIVITAMIN [Concomitant]
     Active Substance: VITAMINS
  8. FERROUS IRON WITH VITAMIN C [Concomitant]
  9. VITAMIN D3 [Concomitant]
     Active Substance: CHOLECALCIFEROL
  10. IMVEXXY [Suspect]
     Active Substance: ESTRADIOL
     Indication: OESTROGEN DEFICIENCY
     Dosage: 10 ?G, 1X/DAY AT NIGHT
     Route: 067
     Dates: start: 201902, end: 2019
  11. VITAMIN B [Concomitant]
     Active Substance: VITAMIN B
  12. PROBIOTICS WITH LACTOBACILLUS [Concomitant]
     Dosage: UNK, 1X/DAY
  13. IMVEXXY [Suspect]
     Active Substance: ESTRADIOL
     Dosage: 10 ?G, 1X/WEEK AT NIGHT
     Route: 067
     Dates: start: 201903
  14. CARVEDILOL. [Concomitant]
     Active Substance: CARVEDILOL
     Dosage: 25 MG, 2X/DAY
  15. LEVOTHYROXINE. [Concomitant]
     Active Substance: LEVOTHYROXINE
     Dosage: 112 MG, 1X/DAY
  16. MAGNESIUM OXIDE. [Concomitant]
     Active Substance: MAGNESIUM OXIDE
     Dosage: 400 MG, 1X/DAY
  17. ASPIRIN. [Concomitant]
     Active Substance: ASPIRIN

REACTIONS (6)
  - Headache [Recovering/Resolving]
  - Decreased appetite [Recovering/Resolving]
  - Off label use [Not Recovered/Not Resolved]
  - Dizziness [Recovering/Resolving]
  - Asthenia [Recovering/Resolving]
  - Contraindicated product prescribed [Not Recovered/Not Resolved]

NARRATIVE: CASE EVENT DATE: 201902
